FAERS Safety Report 12412507 (Version 2)
Quarter: 2016Q2

REPORT INFORMATION
  Report Type: Report from Study
  Country: US (occurrence: US)
  Receive Date: 20160527
  Receipt Date: 20160624
  Transmission Date: 20160815
  Serious: Yes (Other)
  Sender: FDA-Public Use
  Company Number: US-BAYER-2016-098154

PATIENT
  Age: 33 Year
  Sex: Female

DRUGS (2)
  1. BETASERON [Suspect]
     Active Substance: INTERFERON BETA-1B
     Indication: MULTIPLE SCLEROSIS
     Dosage: 8 MIU, QOD
     Route: 058
     Dates: start: 20090611, end: 20120123
  2. BETASERON [Suspect]
     Active Substance: INTERFERON BETA-1B
     Indication: MULTIPLE SCLEROSIS
     Dosage: 0.125 MG, QOD

REACTIONS (40)
  - Hyporeflexia [None]
  - Influenza like illness [None]
  - Product use issue [None]
  - Body temperature decreased [Recovered/Resolved]
  - Fatigue [Recovered/Resolved]
  - Herpes zoster [None]
  - Migraine [None]
  - Pupillary reflex impaired [None]
  - Influenza like illness [None]
  - Insomnia [None]
  - Asthenia [None]
  - Influenza like illness [None]
  - Adverse drug reaction [None]
  - Influenza like illness [None]
  - Dysaesthesia [None]
  - Chest discomfort [None]
  - Musculoskeletal stiffness [None]
  - Neuralgia [None]
  - Cyanosis [None]
  - Musculoskeletal discomfort [None]
  - Back pain [None]
  - Optic neuritis [None]
  - Muscle spasticity [None]
  - Pupillary reflex impaired [None]
  - Optic atrophy [None]
  - Nausea [None]
  - Cyanosis [Recovered/Resolved]
  - Chills [Recovered/Resolved]
  - Optic atrophy [None]
  - Grip strength decreased [None]
  - Confusional state [None]
  - Fatigue [None]
  - Dysaesthesia [None]
  - Muscle spasticity [None]
  - Gait disturbance [None]
  - Hypoaesthesia [None]
  - Hyporeflexia [None]
  - Hyporeflexia [None]
  - Obesity [None]
  - Gastrointestinal disorder [None]

NARRATIVE: CASE EVENT DATE: 20120123
